FAERS Safety Report 4857595-3 (Version None)
Quarter: 2005Q4

REPORT INFORMATION
  Report Type: 
  Country: None (occurrence: None)
  Receive Date: 20051219
  Receipt Date: 20050524
  Transmission Date: 20060501
  Serious: No
  Sender: FDA-Public Use
  Company Number: US-GLAXOSMITHKLINE-A0559864A

PATIENT
  Sex: Female

DRUGS (2)
  1. NICODERM CQ [Suspect]
  2. CLONIDINE [Concomitant]
     Indication: BLOOD PRESSURE

REACTIONS (3)
  - HEADACHE [None]
  - URTICARIA [None]
  - VOMITING [None]
